FAERS Safety Report 4388789-1 (Version None)
Quarter: 2004Q2

REPORT INFORMATION
  Report Type: 
  Country: None (occurrence: None)
  Receive Date: 20040624
  Receipt Date: 20040609
  Transmission Date: 20050107
  Serious: Yes (Hospitalization)
  Sender: FDA-Public Use
  Company Number: 199588

PATIENT
  Age: 46 Year
  Sex: Male
  Weight: 66 kg

DRUGS (1)
  1. AVONEX [Suspect]
     Indication: MULTIPLE SCLEROSIS
     Dosage: 30 MCG QW IM
     Route: 030

REACTIONS (6)
  - CELLULITIS GANGRENOUS [None]
  - CULTURE URINE POSITIVE [None]
  - DECUBITUS ULCER [None]
  - STREPTOCOCCAL INFECTION [None]
  - STREPTOCOCCAL SEPSIS [None]
  - URINARY TRACT INFECTION ENTEROCOCCAL [None]
